FAERS Safety Report 19650396 (Version 1)
Quarter: 2021Q3

REPORT INFORMATION
  Report Type: Spontaneous
  Country: US (occurrence: US)
  Receive Date: 20210802
  Receipt Date: 20210802
  Transmission Date: 20211014
  Serious: No
  Sender: FDA-Public Use
  Company Number: US-GALDERMA-US2021013438

PATIENT

DRUGS (4)
  1. NO ALCOHOLS IN MOISTURIZERS [Concomitant]
     Indication: PRODUCT USED FOR UNKNOWN INDICATION
     Dosage: UNK
     Route: 061
  2. DIFFERIN GEL [Suspect]
     Active Substance: ADAPALENE
     Indication: SCAR
  3. DIFFERIN GEL [Suspect]
     Active Substance: ADAPALENE
     Indication: PALLOR
     Dosage: 1 DOSAGE FORM, UNKNOWN FREQUENCY
     Route: 061
  4. MILD CLEANSER [Concomitant]
     Indication: PRODUCT USED FOR UNKNOWN INDICATION
     Dosage: UNK
     Route: 061

REACTIONS (4)
  - Dry skin [Unknown]
  - Therapeutic response unexpected [Recovered/Resolved]
  - Product use in unapproved indication [Recovered/Resolved]
  - Drug effective for unapproved indication [Recovered/Resolved]
